FAERS Safety Report 12876451 (Version 2)
Quarter: 2016Q4

REPORT INFORMATION
  Report Type: Spontaneous
  Country: US (occurrence: US)
  Receive Date: 20161024
  Receipt Date: 20161110
  Transmission Date: 20170207
  Serious: Yes (Hospitalization)
  Sender: FDA-Public Use
  Company Number: US-MALLINCKRODT-T201605117

PATIENT
  Age: 16 Year
  Sex: Female

DRUGS (1)
  1. GABLOFEN [Suspect]
     Active Substance: BACLOFEN
     Indication: MOVEMENT DISORDER
     Dosage: 360.7 ?G, QD
     Route: 037

REACTIONS (6)
  - Somnolence [Recovering/Resolving]
  - Device issue [Unknown]
  - Screaming [Recovering/Resolving]
  - Dyskinesia [Recovering/Resolving]
  - Agitation [Recovering/Resolving]
  - Crying [Recovering/Resolving]

NARRATIVE: CASE EVENT DATE: 20160917
